FAERS Safety Report 9971722 (Version 1)
Quarter: 2014Q1

REPORT INFORMATION
  Report Type: Spontaneous
  Country: US (occurrence: None)
  Receive Date: 20140127
  Receipt Date: 20140127
  Transmission Date: 20141002
  Serious: Yes (Other)
  Sender: FDA-Public Use
  Company Number: 1241967

PATIENT
  Sex: Male

DRUGS (2)
  1. RITUXAN [Suspect]
     Indication: WALDENSTROM^S MACROGLOBULINAEMIA
     Dosage: 375 MG, INTRAVENOUS (NOT OTHERWISE SPECIFIED)
     Route: 042
  2. RITUXAN [Suspect]
     Indication: OFF LABEL USE
     Dosage: 375 MG, INTRAVENOUS (NOT OTHERWISE SPECIFIED)
     Route: 042

REACTIONS (4)
  - Anaphylactic reaction [None]
  - Heart rate increased [None]
  - Hypotension [None]
  - Neutropenia [None]
